FAERS Safety Report 4549502-8 (Version None)
Quarter: 2005Q1

REPORT INFORMATION
  Report Type: 
  Country: None (occurrence: None)
  Receive Date: 20050110
  Receipt Date: 20050110
  Transmission Date: 20050727
  Serious: No
  Sender: FDA-Public Use
  Company Number: None

PATIENT
  Age: 84 Year
  Sex: Female
  Weight: 54 kg

DRUGS (7)
  1. ARIXTRA [Suspect]
     Indication: THROMBOSIS PROPHYLAXIS
     Dosage: 25 MG DAILY SUB
     Route: 058
     Dates: start: 20041216, end: 20041221
  2. ATENOLOL [Concomitant]
  3. NORVASC [Concomitant]
  4. SURFAK [Concomitant]
  5. IRON [Concomitant]
  6. PHENERGAN [Concomitant]
  7. MICARDIS [Concomitant]

REACTIONS (1)
  - LIVER FUNCTION TEST ABNORMAL [None]
